FAERS Safety Report 7254984-7 (Version None)
Quarter: 2011Q1

REPORT INFORMATION
  Report Type: 
  Country: None (occurrence: None)
  Receive Date: 20110129
  Receipt Date: 20100208
  Transmission Date: 20110831
  Serious: Yes (Hospitalization)
  Sender: FDA-Public Use
  Company Number: US-ABBOTT-10P-163-0624917-00

PATIENT
  Sex: Male
  Weight: 95.34 kg

DRUGS (15)
  1. COLCHICINE [Concomitant]
     Indication: GOUT
  2. HUMIRA [Suspect]
     Dosage: 160 MG LOADING DOSE
     Dates: start: 20091201, end: 20091201
  3. NEXIUM [Concomitant]
     Indication: GASTROOESOPHAGEAL REFLUX DISEASE
  4. BENICAR [Concomitant]
     Indication: HYPERTENSION
  5. LIALDA [Suspect]
     Indication: PRODUCT USED FOR UNKNOWN INDICATION
  6. FLOMAX [Concomitant]
     Indication: DYSURIA
  7. ALLOPURINOL [Concomitant]
     Indication: GOUT
  8. PRAVASTATIN [Concomitant]
     Indication: BLOOD CHOLESTEROL INCREASED
  9. INDOCIN [Concomitant]
     Indication: GOUT
  10. HUMIRA [Suspect]
  11. CALCIUM [Concomitant]
     Indication: PRODUCT USED FOR UNKNOWN INDICATION
  12. HUMIRA [Suspect]
     Dosage: 80 MG LOADING DOSE
  13. BACTRIM [Concomitant]
     Indication: PRODUCT USED FOR UNKNOWN INDICATION
  14. HUMIRA [Suspect]
     Indication: CROHN'S DISEASE
     Dates: start: 20090101
  15. FISH OIL [Concomitant]
     Indication: PRODUCT USED FOR UNKNOWN INDICATION

REACTIONS (5)
  - CHEST DISCOMFORT [None]
  - ABDOMINAL PAIN [None]
  - HAEMORRHOIDS [None]
  - DYSPNOEA [None]
  - RECTAL HAEMORRHAGE [None]
